FAERS Safety Report 12433376 (Version 2)
Quarter: 2016Q2

REPORT INFORMATION
  Report Type: Spontaneous
  Country: US (occurrence: US)
  Receive Date: 20160603
  Receipt Date: 20160605
  Transmission Date: 20160815
  Serious: Yes (Other)
  Sender: FDA-Public Use
  Company Number: US-TEVA-664486ACC

PATIENT
  Age: 44 Year
  Sex: Female
  Weight: 64.01 kg

DRUGS (3)
  1. CYMBALTA [Concomitant]
     Active Substance: DULOXETINE HYDROCHLORIDE
     Indication: AFFECTIVE DISORDER
  2. CYMBALTA [Concomitant]
     Active Substance: DULOXETINE HYDROCHLORIDE
     Indication: PAIN
  3. PARAGARD T 380A [Suspect]
     Active Substance: COPPER
     Indication: CONTRACEPTION
     Dates: end: 20160525

REACTIONS (7)
  - Device dislocation [Recovered/Resolved]
  - Vaginal haemorrhage [Not Recovered/Not Resolved]
  - Pain [Recovered/Resolved]
  - Procedural pain [Recovered/Resolved]
  - Presyncope [Recovered/Resolved]
  - Dysmenorrhoea [Recovered/Resolved]
  - Back pain [Recovered/Resolved]

NARRATIVE: CASE EVENT DATE: 20160525
